FAERS Safety Report 6981642-6 (Version None)
Quarter: 2010Q3

REPORT INFORMATION
  Report Type: 
  Country: None (occurrence: None)
  Receive Date: 20100914
  Receipt Date: 20090923
  Transmission Date: 20110219
  Serious: No
  Sender: FDA-Public Use
  Company Number: US-PFIZER INC-2009251832

PATIENT
  Sex: Female
  Weight: 78.47 kg

DRUGS (5)
  1. LYRICA [Suspect]
     Indication: NEURALGIA
     Dosage: 150 MG, 2X/DAY
     Dates: start: 20090723, end: 20090723
  2. NORVASC [Concomitant]
     Dosage: UNK
  3. ACETYLSALICYLIC ACID [Concomitant]
     Dosage: UNK
  4. FOLIC ACID [Concomitant]
     Dosage: UNK
  5. MEDROL [Concomitant]
     Dosage: UNK

REACTIONS (4)
  - DIZZINESS [None]
  - FEELING DRUNK [None]
  - NAUSEA [None]
  - VOMITING [None]
